FAERS Safety Report 7285000-9 (Version None)
Quarter: 2011Q1

REPORT INFORMATION
  Report Type: 
  Country: None (occurrence: None)
  Receive Date: 20110210
  Receipt Date: 20110204
  Transmission Date: 20110831
  Serious: Yes (Death, Hospitalization, Other)
  Sender: FDA-Public Use
  Company Number: CH-AMGEN-CHESP2010005242

PATIENT
  Age: 70 Year
  Sex: Female

DRUGS (1)
  1. ENBREL [Suspect]
     Indication: RHEUMATOID ARTHRITIS
     Dosage: OFF LABEL USE
     Route: 042
     Dates: start: 20080101, end: 20090301

REACTIONS (9)
  - INTRACRANIAL PRESSURE INCREASED [None]
  - AMNESIA [None]
  - DYSKINESIA [None]
  - FALL [None]
  - URINARY INCONTINENCE [None]
  - ATAXIA [None]
  - HYDROCEPHALUS [None]
  - CEREBRAL HAEMORRHAGE [None]
  - PNEUMONIA [None]
